FAERS Safety Report 23982265 (Version 1)
Quarter: 2024Q2

REPORT INFORMATION
  Report Type: Spontaneous
  Country: US (occurrence: None)
  Receive Date: 20240616
  Receipt Date: 20240616
  Transmission Date: 20240716
  Serious: No
  Sender: FDA-Public Use
  Company Number: None

PATIENT
  Sex: Female

DRUGS (1)
  1. MOUNJARO [Suspect]
     Active Substance: TIRZEPATIDE
     Dosage: FREQUENCY : WEEKLY;?
     Route: 058
     Dates: start: 20240615

REACTIONS (7)
  - Arthralgia [None]
  - Myalgia [None]
  - Neck pain [None]
  - Oropharyngeal pain [None]
  - Arthralgia [None]
  - Back pain [None]
  - Abdominal pain [None]

NARRATIVE: CASE EVENT DATE: 20240616
